FAERS Safety Report 8689827 (Version 3)
Quarter: 2014Q3

REPORT INFORMATION
  Report Type: Spontaneous
  Country: US (occurrence: US)
  Receive Date: 20120727
  Receipt Date: 20140724
  Transmission Date: 20150326
  Serious: No
  Sender: FDA-Public Use
  Company Number: US-ASTRAZENECA-2012SE03299

PATIENT
  Age: 59 Year
  Sex: Female
  Weight: 93 kg

DRUGS (31)
  1. SEROQUEL [Suspect]
     Active Substance: QUETIAPINE FUMARATE
     Indication: AFFECTIVE DISORDER
     Dosage: 100MG 6:30PM
     Route: 048
     Dates: start: 2013
  2. SEROQUEL [Suspect]
     Active Substance: QUETIAPINE FUMARATE
     Indication: BIPOLAR II DISORDER
     Dosage: 100MG 6:30PM
     Route: 048
     Dates: start: 2013
  3. MULTIVITAMIN CENTRUM [Concomitant]
     Indication: VITAMIN SUPPLEMENTATION
     Dosage: 1 TAB DAILY
     Route: 048
  4. FISH OIL [Concomitant]
     Active Substance: FISH OIL
     Route: 048
  5. SEROQUEL [Suspect]
     Active Substance: QUETIAPINE FUMARATE
     Indication: SLEEP TERROR
     Dosage: 300MG 5PM
     Route: 048
     Dates: start: 2004
  6. SEROQUEL [Suspect]
     Active Substance: QUETIAPINE FUMARATE
     Indication: BIPOLAR DISORDER
     Dosage: 300MG 5PM
     Route: 048
     Dates: start: 2004
  7. SEROQUEL [Suspect]
     Active Substance: QUETIAPINE FUMARATE
     Indication: SLEEP DISORDER THERAPY
     Dosage: 100MG 6:30PM
     Route: 048
     Dates: start: 2013
  8. SEROQUEL [Suspect]
     Active Substance: QUETIAPINE FUMARATE
     Indication: BIPOLAR DISORDER
     Dosage: 100MG 6:30PM
     Route: 048
     Dates: start: 2013
  9. PROPRANOLOL [Concomitant]
     Active Substance: PROPRANOLOL\PROPRANOLOL HYDROCHLORIDE
     Indication: MIGRAINE
     Route: 048
  10. SEROQUEL [Suspect]
     Active Substance: QUETIAPINE FUMARATE
     Indication: SLEEP DISORDER THERAPY
     Dosage: 300 MG IN THE MORNING AND 600MG AT NIGHT
     Route: 048
  11. SEROQUEL [Suspect]
     Active Substance: QUETIAPINE FUMARATE
     Indication: AFFECTIVE DISORDER
     Route: 048
     Dates: start: 20130709
  12. LEVOTHYROXINE [Concomitant]
     Active Substance: LEVOTHYROXINE
     Indication: HYPOTHYROIDISM
     Route: 048
  13. VITAMIN B12 [Concomitant]
     Active Substance: CYANOCOBALAMIN
     Dosage: 1 TAB DAILY
     Route: 048
  14. SEROQUEL [Suspect]
     Active Substance: QUETIAPINE FUMARATE
     Indication: SLEEP TERROR
     Route: 048
     Dates: start: 20130709
  15. VENLAFAXINE XR [Concomitant]
     Active Substance: VENLAFAXINE HYDROCHLORIDE
     Indication: DEPRESSION
     Route: 048
  16. SEROQUEL [Suspect]
     Active Substance: QUETIAPINE FUMARATE
     Indication: BIPOLAR DISORDER
     Route: 048
     Dates: start: 20130709
  17. SEROQUEL [Suspect]
     Active Substance: QUETIAPINE FUMARATE
     Indication: SLEEP TERROR
     Dosage: 100MG 6:30PM
     Route: 048
     Dates: start: 2013
  18. AMLODIPINE [Concomitant]
     Active Substance: AMLODIPINE BESYLATE
     Indication: HYPERTENSION
     Route: 048
  19. PROPRANOLOL [Concomitant]
     Active Substance: PROPRANOLOL\PROPRANOLOL HYDROCHLORIDE
     Indication: ANXIETY
     Route: 048
  20. SEROQUEL [Suspect]
     Active Substance: QUETIAPINE FUMARATE
     Indication: AFFECTIVE DISORDER
     Dosage: 300 MG IN THE MORNING AND 600MG AT NIGHT
     Route: 048
  21. SEROQUEL [Suspect]
     Active Substance: QUETIAPINE FUMARATE
     Indication: BIPOLAR II DISORDER
     Route: 048
     Dates: start: 20130709
  22. SEROQUEL [Suspect]
     Active Substance: QUETIAPINE FUMARATE
     Indication: AFFECTIVE DISORDER
     Dosage: 300MG 5PM
     Route: 048
     Dates: start: 2004
  23. SEROQUEL [Suspect]
     Active Substance: QUETIAPINE FUMARATE
     Indication: BIPOLAR II DISORDER
     Dosage: 300MG 5PM
     Route: 048
     Dates: start: 2004
  24. LISINOPRIL. [Suspect]
     Active Substance: LISINOPRIL
     Indication: HYPERTENSION
     Route: 048
  25. SEROQUEL [Suspect]
     Active Substance: QUETIAPINE FUMARATE
     Indication: SLEEP DISORDER THERAPY
     Route: 048
     Dates: start: 20130709
  26. LISINOPRIL. [Suspect]
     Active Substance: LISINOPRIL
     Indication: HYPERTENSION
     Route: 048
     Dates: start: 2006
  27. LISINOPRIL. [Suspect]
     Active Substance: LISINOPRIL
     Indication: HYPERTENSION
     Route: 048
  28. SEROQUEL [Suspect]
     Active Substance: QUETIAPINE FUMARATE
     Indication: BIPOLAR II DISORDER
     Dosage: 300 MG IN THE MORNING AND 600MG AT NIGHT
     Route: 048
  29. SEROQUEL [Suspect]
     Active Substance: QUETIAPINE FUMARATE
     Indication: SLEEP TERROR
     Dosage: 300 MG IN THE MORNING AND 600MG AT NIGHT
     Route: 048
  30. SEROQUEL [Suspect]
     Active Substance: QUETIAPINE FUMARATE
     Indication: BIPOLAR DISORDER
     Dosage: 300 MG IN THE MORNING AND 600MG AT NIGHT
     Route: 048
  31. SEROQUEL [Suspect]
     Active Substance: QUETIAPINE FUMARATE
     Indication: SLEEP DISORDER THERAPY
     Dosage: 300MG 5PM
     Route: 048
     Dates: start: 2004

REACTIONS (20)
  - Hypoaesthesia [Unknown]
  - Migraine [Unknown]
  - Drug ineffective [Not Recovered/Not Resolved]
  - Weight decreased [Unknown]
  - Therapeutic response changed [Unknown]
  - Discomfort [Unknown]
  - Insomnia [Recovered/Resolved]
  - Hypothyroidism [Unknown]
  - Depression [Recovered/Resolved]
  - Anxiety [Not Recovered/Not Resolved]
  - Hypertension [Not Recovered/Not Resolved]
  - Mental impairment [Unknown]
  - Circadian rhythm sleep disorder [Unknown]
  - Intentional product misuse [Not Recovered/Not Resolved]
  - Multiple sclerosis [Unknown]
  - Headache [Unknown]
  - Photopsia [Unknown]
  - Visual acuity reduced [Unknown]
  - Agitation [Not Recovered/Not Resolved]
  - Palpitations [Unknown]

NARRATIVE: CASE EVENT DATE: 2006
